FAERS Safety Report 6682681-5 (Version None)
Quarter: 2010Q2

REPORT INFORMATION
  Report Type: 
  Country: None (occurrence: None)
  Receive Date: 20100415
  Receipt Date: 20100404
  Transmission Date: 20101027
  Serious: Yes (Hospitalization)
  Sender: FDA-Public Use
  Company Number: IT-BAXTER-2010BH008946

PATIENT
  Age: 21 Year
  Sex: Male

DRUGS (4)
  1. HOLOXAN BAXTER [Suspect]
     Indication: OSTEOSARCOMA METASTATIC
     Route: 042
     Dates: start: 20100201, end: 20100226
  2. UROMITEXAN BAXTER [Suspect]
     Indication: DRUG USE FOR UNKNOWN INDICATION
     Route: 042
     Dates: start: 20100222, end: 20100226
  3. KYTRIL [Concomitant]
     Indication: DRUG USE FOR UNKNOWN INDICATION
     Route: 042
     Dates: start: 20100222, end: 20100226
  4. DEXAMETHASONE [Concomitant]
     Indication: DRUG USE FOR UNKNOWN INDICATION
     Route: 042
     Dates: start: 20100222, end: 20100226

REACTIONS (3)
  - HYPOKALAEMIA [None]
  - LEUKOPENIA [None]
  - NEUTROPENIA [None]
